FAERS Safety Report 24539768 (Version 1)
Quarter: 2024Q4

REPORT INFORMATION
  Report Type: Spontaneous
  Country: CZ (occurrence: CZ)
  Receive Date: 20241023
  Receipt Date: 20241023
  Transmission Date: 20250114
  Serious: Yes (Hospitalization, Other)
  Sender: FRESENIUS KABI
  Company Number: CZ-009507513-2409CZE010154

PATIENT
  Age: 31 Year
  Sex: Female

DRUGS (3)
  1. CARBOPLATIN [Suspect]
     Active Substance: CARBOPLATIN
     Indication: Breast cancer
     Dosage: UNK
  2. PACLITAXEL [Suspect]
     Active Substance: PACLITAXEL
     Indication: Breast cancer
     Dosage: UNK
  3. KEYTRUDA [Suspect]
     Active Substance: PEMBROLIZUMAB
     Indication: Breast cancer
     Dosage: UNK?FOA-SOLUTION FOR INFUSION

REACTIONS (28)
  - Hepatotoxicity [Unknown]
  - Body temperature increased [Unknown]
  - Haemoglobin abnormal [Unknown]
  - C-reactive protein abnormal [Unknown]
  - Body temperature abnormal [Unknown]
  - Hypothyroidism [Unknown]
  - Diarrhoea [Unknown]
  - Mucocutaneous toxicity [Unknown]
  - Ill-defined disorder [Unknown]
  - Fungal infection [Unknown]
  - Dyspepsia [Unknown]
  - Pyrexia [Unknown]
  - Neutrophil count abnormal [Unknown]
  - Chills [Unknown]
  - Rhinorrhoea [Unknown]
  - Cough [Unknown]
  - Fatigue [Unknown]
  - Nausea [Unknown]
  - Diarrhoea [Unknown]
  - Nausea [Unknown]
  - Platelet count abnormal [Unknown]
  - Body temperature abnormal [Unknown]
  - C-reactive protein abnormal [Unknown]
  - Fatigue [Unknown]
  - Alanine aminotransferase abnormal [Unknown]
  - Aspartate aminotransferase abnormal [Unknown]
  - Alanine aminotransferase abnormal [Unknown]
  - Diarrhoea [Unknown]
